FAERS Safety Report 22175082 (Version 3)
Quarter: 2023Q2

REPORT INFORMATION
  Report Type: Other
  Country: NO (occurrence: NO)
  Receive Date: 20230405
  Receipt Date: 20230419
  Transmission Date: 20230722
  Serious: Yes (Other)
  Sender: FDA-Public Use
  Company Number: None

PATIENT
  Age: 40 Year
  Sex: Female
  Weight: 100 kg

DRUGS (12)
  1. MIRABEGRON [Suspect]
     Active Substance: MIRABEGRON
     Indication: Bladder spasm
     Route: 065
     Dates: start: 20230319
  2. Folsyre orifarm [Concomitant]
     Indication: Prophylaxis
     Dosage: 1 DF, OTHER(SIX DAYS PER WEEK)
     Route: 065
     Dates: start: 2022
  3. DESOGESTREL [Concomitant]
     Active Substance: DESOGESTREL
     Indication: Dysmenorrhoea
     Route: 065
  4. VENLAFAXINE HYDROCHLORIDE [Concomitant]
     Active Substance: VENLAFAXINE HYDROCHLORIDE
     Indication: Depression
     Dosage: 225 MG, ONCE DAILY (MORNING)
     Route: 065
  5. METHOTREXATE [Concomitant]
     Active Substance: METHOTREXATE
     Indication: Henoch-Schonlein purpura
     Dosage: 10 MG, ONCE DAILY (THURSDAYS)
     Route: 065
     Dates: start: 2022
  6. LAMICTAL [Concomitant]
     Active Substance: LAMOTRIGINE
     Indication: Depression
     Dosage: 300 MG, ONCE DAILY (MORNING)
     Route: 065
  7. MIRTAZAPINE [Concomitant]
     Active Substance: MIRTAZAPINE
     Indication: Depression
     Dosage: 30 MG, ONCE DAILY (EVENING)
     Route: 065
  8. Paralgin forte [Concomitant]
     Indication: Pain
     Dosage: 1-3 TABLETS PER DAY, AS NEEDED
     Route: 065
  9. CALCIUM CARBONATE\CHOLECALCIFEROL [Concomitant]
     Active Substance: CALCIUM CARBONATE\CHOLECALCIFEROL
     Indication: Osteoporosis
     Route: 065
  10. COD LIVER OIL [Concomitant]
     Active Substance: COD LIVER OIL
     Indication: Product used for unknown indication
     Dosage: UNK UNK, UNKNOWN FREQ.
     Route: 065
  11. RAMIPRIL [Concomitant]
     Active Substance: RAMIPRIL
     Indication: Hypertension
     Route: 065
  12. RAMIPRIL [Concomitant]
     Active Substance: RAMIPRIL
     Indication: Immune-mediated nephritis

REACTIONS (4)
  - Syncope [Not Recovered/Not Resolved]
  - Dizziness [Not Recovered/Not Resolved]
  - Palpitations [Not Recovered/Not Resolved]
  - Drug ineffective [Unknown]

NARRATIVE: CASE EVENT DATE: 20230320
